FAERS Safety Report 11838698 (Version 1)
Quarter: 2015Q4

REPORT INFORMATION
  Report Type: Spontaneous
  Country: US (occurrence: US)
  Receive Date: 20151215
  Receipt Date: 20151215
  Transmission Date: 20160305
  Serious: No
  Sender: FDA-Public Use
  Company Number: US-SA-2015SA178799

PATIENT
  Age: 72 Year
  Sex: Male
  Weight: 84 kg

DRUGS (17)
  1. TAXOTERE [Suspect]
     Active Substance: DOCETAXEL
     Route: 065
     Dates: start: 201402
  2. LANTUS [Concomitant]
     Active Substance: INSULIN GLARGINE
  3. MULTAQ [Concomitant]
     Active Substance: DRONEDARONE
  4. XGEVA [Concomitant]
     Active Substance: DENOSUMAB
  5. PREDNISONE. [Concomitant]
     Active Substance: PREDNISONE
  6. XTANDI [Suspect]
     Active Substance: ENZALUTAMIDE
     Indication: PROSTATE CANCER
     Dosage: STRENGTH: 40MG
     Route: 048
     Dates: start: 20140228
  7. VITAMIN D3 [Concomitant]
     Active Substance: CHOLECALCIFEROL
  8. ATENOLOL. [Concomitant]
     Active Substance: ATENOLOL
  9. HUMALOG [Concomitant]
     Active Substance: INSULIN LISPRO
  10. PRAVASTATIN [Concomitant]
     Active Substance: PRAVASTATIN\PRAVASTATIN SODIUM
  11. CULTURELLE [Concomitant]
     Active Substance: LACTOBACILLUS RHAMNOSUS
  12. COUMADIN [Concomitant]
     Active Substance: WARFARIN SODIUM
  13. XARELTO [Concomitant]
     Active Substance: RIVAROXABAN
  14. LEUPROLIDE [Concomitant]
     Active Substance: LEUPROLIDE
  15. PANCREATIN [Concomitant]
     Active Substance: PANCRELIPASE
  16. AMLODIPINE [Concomitant]
     Active Substance: AMLODIPINE BESYLATE
  17. VITAMIN B12 [Concomitant]
     Active Substance: CYANOCOBALAMIN

REACTIONS (5)
  - Dyspnoea [Unknown]
  - Fatigue [Unknown]
  - Myalgia [Unknown]
  - Stomatitis [Unknown]
  - Hypertension [Unknown]
